FAERS Safety Report 9835921 (Version 4)
Quarter: 2014Q1

REPORT INFORMATION
  Report Type: Report from Study
  Country: CN (occurrence: CN)
  Receive Date: 20140122
  Receipt Date: 20140227
  Transmission Date: 20141002
  Serious: Yes (Hospitalization)
  Sender: FDA-Public Use
  Company Number: CN-PFIZER INC-2013217323

PATIENT
  Age: 25 Year
  Sex: Male
  Weight: 72.8 kg

DRUGS (22)
  1. BLINDED METHYLPREDNISOLONE [Suspect]
     Indication: IGA NEPHROPATHY
     Dosage: 48 MG, 1X/DAY
     Route: 048
     Dates: start: 20121225, end: 20130123
  2. BLINDED METHYLPREDNISOLONE [Suspect]
     Indication: IGA NEPHROPATHY
     Dosage: 48 MG, 1X/DAY
     Route: 048
     Dates: start: 20121225, end: 20130123
  3. BLINDED PLACEBO [Suspect]
     Indication: IGA NEPHROPATHY
     Dosage: 48 MG, 1X/DAY
     Route: 048
     Dates: start: 20121225, end: 20130123
  4. BLINDED PLACEBO [Suspect]
     Indication: IGA NEPHROPATHY
     Dosage: 48 MG, 1X/DAY
     Route: 048
     Dates: start: 20121225, end: 20130123
  5. BLINDED METHYLPREDNISOLONE [Suspect]
     Dosage: 40 MG, 1X/DAY
     Route: 048
     Dates: start: 20130124, end: 20130222
  6. BLINDED METHYLPREDNISOLONE [Suspect]
     Dosage: 40 MG, 1X/DAY
     Route: 048
     Dates: start: 20130124, end: 20130222
  7. BLINDED PLACEBO [Suspect]
     Dosage: 40 MG, 1X/DAY
     Route: 048
     Dates: start: 20130124, end: 20130222
  8. BLINDED PLACEBO [Suspect]
     Dosage: 40 MG, 1X/DAY
     Route: 048
     Dates: start: 20130124, end: 20130222
  9. BLINDED METHYLPREDNISOLONE [Suspect]
     Dosage: 32 MG, 1X/DAY
     Route: 048
     Dates: start: 20130223, end: 20130324
  10. BLINDED METHYLPREDNISOLONE [Suspect]
     Dosage: 32 MG, 1X/DAY
     Route: 048
     Dates: start: 20130223, end: 20130324
  11. BLINDED PLACEBO [Suspect]
     Dosage: 32 MG, 1X/DAY
     Route: 048
     Dates: start: 20130223, end: 20130324
  12. BLINDED PLACEBO [Suspect]
     Dosage: 32 MG, 1X/DAY
     Route: 048
     Dates: start: 20130223, end: 20130324
  13. BLINDED METHYLPREDNISOLONE [Suspect]
     Dosage: 24 MG, 1X/DAY
     Route: 048
     Dates: start: 20130423, end: 20130530
  14. BLINDED METHYLPREDNISOLONE [Suspect]
     Dosage: 24 MG, 1X/DAY
     Route: 048
     Dates: start: 20130423, end: 20130530
  15. BLINDED PLACEBO [Suspect]
     Dosage: 24 MG, 1X/DAY
     Route: 048
     Dates: start: 20130423, end: 20130530
  16. BLINDED PLACEBO [Suspect]
     Dosage: 24 MG, 1X/DAY
     Route: 048
     Dates: start: 20130423, end: 20130530
  17. RAMIPRIL [Suspect]
     Indication: HYPERTENSION
     Dosage: UNK
     Route: 048
     Dates: start: 20120711, end: 20130530
  18. RAMIPRIL [Suspect]
     Indication: PROTEINURIA
  19. HYTRIN [Concomitant]
     Indication: HYPERTENSION
     Dosage: UNK
     Route: 048
     Dates: start: 20120711
  20. BETALOC [Concomitant]
     Indication: HYPERTENSION
     Dosage: UNK
     Route: 048
     Dates: start: 20120711
  21. FELODIPINE [Concomitant]
     Indication: HYPERTENSION
     Dosage: UNK
     Route: 048
     Dates: start: 20130711
  22. ERYTHROPOIETIN [Concomitant]
     Indication: ANAEMIA
     Dosage: UNK
     Route: 058
     Dates: start: 20130423

REACTIONS (2)
  - Azotaemia [Not Recovered/Not Resolved]
  - Cardiac failure [Recovered/Resolved]
